FAERS Safety Report 5362947-1 (Version None)
Quarter: 2007Q2

REPORT INFORMATION
  Report Type: 
  Country: None (occurrence: None)
  Receive Date: 20070615
  Receipt Date: 20070530
  Transmission Date: 20071010
  Serious: Yes (Life-Threatening, Hospitalization)
  Sender: FDA-Public Use
  Company Number: 8024329

PATIENT
  Age: 14 Day

DRUGS (1)
  1. KEPPRA [Suspect]
     Dosage: IV
     Route: 042

REACTIONS (2)
  - NEONATAL DISORDER [None]
  - SUPRAVENTRICULAR TACHYCARDIA [None]
